FAERS Safety Report 23060498 (Version 1)
Quarter: 2023Q4

REPORT INFORMATION
  Report Type: Spontaneous
  Country: TR (occurrence: TR)
  Receive Date: 20231012
  Receipt Date: 20231012
  Transmission Date: 20240109
  Serious: Yes (Hospitalization)
  Sender: FDA-Public Use
  Company Number: TR-LUNDBECK-DKLU3068678

PATIENT
  Age: 33 Year
  Sex: Male

DRUGS (2)
  1. VORTIOXETINE [Suspect]
     Active Substance: VORTIOXETINE
     Indication: Depressive symptom
     Dosage: 10 MILLIGRAM, QD
     Route: 065
  2. VORTIOXETINE [Suspect]
     Active Substance: VORTIOXETINE
     Dosage: 20 MILLIGRAM, QD
     Route: 065

REACTIONS (1)
  - Ejaculation failure [Recovered/Resolved]
